FAERS Safety Report 9750220 (Version 2)
Quarter: 2013Q4

REPORT INFORMATION
  Report Type: Report from Study
  Country: US (occurrence: US)
  Receive Date: 20131212
  Receipt Date: 20131212
  Transmission Date: 20140711
  Serious: Yes (Death, Hospitalization, Other)
  Sender: FDA-Public Use
  Company Number: US-MPIJNJ-2013MPI000804

PATIENT
  Age: 53 Year
  Sex: Female
  Weight: 62.3 kg

DRUGS (33)
  1. VELCADE [Suspect]
     Indication: MANTLE CELL LYMPHOMA
     Dosage: 2.1 MG, UNK
     Route: 040
     Dates: start: 20131030, end: 20131103
  2. CYCLOPHOSPHAMIDE [Suspect]
     Indication: MANTLE CELL LYMPHOMA
     Dosage: 483 MG, UNK
     Route: 042
     Dates: start: 20131030, end: 20131103
  3. VINCRISTINE [Suspect]
     Indication: MANTLE CELL LYMPHOMA
     Dosage: 2 MG, UNK
     Route: 042
     Dates: start: 20131030, end: 20131103
  4. DOXORUBICIN [Suspect]
     Indication: MANTLE CELL LYMPHOMA
     Dosage: 81 MG, UNK
     Route: 040
     Dates: start: 20131030, end: 20131103
  5. DEXAMETHASONE [Suspect]
     Indication: MANTLE CELL LYMPHOMA
     Dosage: UNK
     Route: 042
     Dates: start: 20131030, end: 20131103
  6. RITUXAN [Suspect]
     Indication: MANTLE CELL LYMPHOMA
     Dosage: 604 MG, UNK
     Route: 042
     Dates: start: 20131029, end: 20131029
  7. METHOTREXATE [Suspect]
     Indication: MANTLE CELL LYMPHOMA
     Dosage: UNK
     Dates: start: 20131030, end: 20131103
  8. CYTARABINE [Suspect]
     Indication: MANTLE CELL LYMPHOMA
     Dosage: UNK
     Dates: start: 20131030, end: 20131103
  9. ALLOPURINOL [Concomitant]
     Indication: PROPHYLAXIS
     Dosage: 300 MG, QD
     Route: 048
  10. BUPROPION [Concomitant]
     Dosage: 200 MG, QD
     Route: 048
  11. BUPROPION [Concomitant]
     Dosage: 150 UNK, UNK
     Route: 048
  12. BUPROPION [Concomitant]
     Dosage: 150 MG, BID
     Route: 048
  13. FLUCONAZOLE [Concomitant]
     Indication: PROPHYLAXIS
     Dosage: 200 MG, QD
     Route: 048
  14. FLUCONAZOLE [Concomitant]
     Dosage: 100 UNK, UNK
     Route: 048
  15. PREDNISONE [Concomitant]
     Dosage: 20 MG, QD
     Route: 048
  16. SERTRALINE [Concomitant]
     Dosage: 50 MG, QD
     Route: 048
  17. VALACICLOVIR [Concomitant]
     Dosage: 500 MG, BID
     Route: 048
  18. CIPROFLOXACIN [Concomitant]
     Indication: ANTIBIOTIC PROPHYLAXIS
     Dosage: 500 MG, BID
     Route: 048
  19. OXYCODONE [Concomitant]
     Dosage: 20 MG, BID
     Route: 048
  20. FILGRASTIM [Concomitant]
     Indication: NEUTROPENIA
     Dosage: 300 ?G, QD
     Route: 058
  21. ACETAMINOPHEN [Concomitant]
     Dosage: 650 MG, UNK
     Route: 048
  22. FUROSEMIDE [Concomitant]
     Dosage: 20 MG, UNK
     Route: 040
  23. FUROSEMIDE [Concomitant]
     Dosage: 40 MG, UNK
     Route: 040
  24. SOLUMEDROL [Concomitant]
     Dosage: 1000 MG, QD
     Route: 042
  25. FAMOTIDINE [Concomitant]
     Dosage: 20 MG, BID
     Route: 042
  26. AZITHROMYCIN [Concomitant]
     Dosage: 500 MG, QD
     Route: 042
  27. CEFTRIAXONE [Concomitant]
     Dosage: 1 G, QD
     Route: 042
  28. SENNOSIDES A+B [Concomitant]
     Dosage: UNK, QD
     Route: 048
  29. DOCUSATE [Concomitant]
     Dosage: 100 MG, BID
     Route: 048
  30. ZOFRAN                             /00955301/ [Concomitant]
     Route: 042
  31. MESNEX [Concomitant]
     Dosage: 966 MG, QD
     Route: 042
  32. ATIVAN [Concomitant]
     Indication: ANXIETY
     Dosage: 0.5 MG, UNK
     Route: 048
  33. ATIVAN [Concomitant]
     Indication: INSOMNIA

REACTIONS (3)
  - Death [Fatal]
  - Acute respiratory failure [Not Recovered/Not Resolved]
  - Infusion related reaction [Recovered/Resolved]
